FAERS Safety Report 5248112-7 (Version None)
Quarter: 2007Q1

REPORT INFORMATION
  Report Type: 
  Country: None (occurrence: None)
  Receive Date: 20070227
  Receipt Date: 20070226
  Transmission Date: 20070707
  Serious: Yes (Death, Other)
  Sender: FDA-Public Use
  Company Number: US-BRISTOL-MYERS SQUIBB COMPANY-13643853

PATIENT
  Sex: Male

DRUGS (2)
  1. COUMADIN [Suspect]
  2. COUMADIN [Suspect]

REACTIONS (2)
  - COLON CANCER [None]
  - DEATH [None]
